FAERS Safety Report 8228784-5 (Version None)
Quarter: 2012Q1

REPORT INFORMATION
  Report Type: 
  Country: None (occurrence: None)
  Receive Date: 20120322
  Receipt Date: 20111103
  Transmission Date: 20120608
  Serious: Yes (Other)
  Sender: FDA-Public Use
  Company Number: CA-GLAXOSMITHKLINE-A0951804A

PATIENT
  Sex: Male
  Weight: 89.5 kg

DRUGS (3)
  1. ADVAIR DISKUS 100/50 [Suspect]
     Indication: ASTHMA
     Dosage: 2PUFF TWICE PER DAY
     Route: 055
     Dates: start: 20060101
  2. SPIRIVA [Concomitant]
     Route: 065
  3. VENTOLIN [Concomitant]
     Route: 065

REACTIONS (6)
  - MALAISE [None]
  - BACK PAIN [None]
  - SPUTUM DISCOLOURED [None]
  - COUGH [None]
  - OSTEOPOROSIS [None]
  - PNEUMONIA [None]
